FAERS Safety Report 6335380-3 (Version None)
Quarter: 2009Q3

REPORT INFORMATION
  Report Type: 
  Country: None (occurrence: None)
  Receive Date: 20090827
  Receipt Date: 20090810
  Transmission Date: 20100115
  Serious: Yes (Other)
  Sender: FDA-Public Use
  Company Number: 001#1#2007-00081

PATIENT
  Sex: Female

DRUGS (1)
  1. NEUPRO [Suspect]
     Dosage: DAILY DOSE: 6 MILLIGRAM/24 HOURS; UNITE DOSE 6 MILLIGRAMS/24 HOURS TRANSDERMAL
     Route: 062

REACTIONS (4)
  - BLISTER [None]
  - ERYTHEMA [None]
  - PRURITUS [None]
  - SKIN REACTION [None]
